FAERS Safety Report 14572168 (Version 2)
Quarter: 2018Q1

REPORT INFORMATION
  Report Type: Report from Study
  Country: US (occurrence: US)
  Receive Date: 20180226
  Receipt Date: 20180330
  Transmission Date: 20180509
  Serious: Yes (Hospitalization)
  Sender: FDA-Public Use
  Company Number: US-ROCHE-2073893

PATIENT
  Age: 71 Year
  Sex: Male
  Weight: 104.6 kg

DRUGS (2)
  1. TEMOZOLOMIDE. [Suspect]
     Active Substance: TEMOZOLOMIDE
     Indication: GLIOBLASTOMA MULTIFORME
     Dosage: LAST DOSE WAS ON 05/MAR/2018
     Route: 048
     Dates: start: 20180122
  2. ATEZOLIZUMAB. [Suspect]
     Active Substance: ATEZOLIZUMAB
     Indication: GLIOBLASTOMA MULTIFORME
     Dosage: LAST DOSE WAS ON 05/MAR/2018
     Route: 042
     Dates: start: 20180123

REACTIONS (10)
  - Pain [Unknown]
  - Pain in extremity [Unknown]
  - Ataxia [Unknown]
  - Muscular weakness [Unknown]
  - Myalgia [Unknown]
  - Hemianopia [Unknown]
  - Oropharyngeal pain [Unknown]
  - Gait disturbance [Unknown]
  - Confusional state [Unknown]
  - Eye disorder [Unknown]

NARRATIVE: CASE EVENT DATE: 20180211
